FAERS Safety Report 6858299-8 (Version None)
Quarter: 2010Q3

REPORT INFORMATION
  Report Type: 
  Country: None (occurrence: None)
  Receive Date: 20100719
  Receipt Date: 20080204
  Transmission Date: 20110219
  Serious: No
  Sender: FDA-Public Use
  Company Number: US-PFIZER INC-2008011666

PATIENT
  Sex: Female
  Weight: 75 kg

DRUGS (6)
  1. CHANTIX [Suspect]
     Indication: SMOKING CESSATION THERAPY
     Dates: start: 20071001
  2. ALL OTHER THERAPEUTIC PRODUCTS [Concomitant]
     Indication: GASTROOESOPHAGEAL REFLUX DISEASE
  3. ALL OTHER THERAPEUTIC PRODUCTS [Concomitant]
     Indication: IRRITABLE BOWEL SYNDROME
  4. LIPITOR [Concomitant]
     Indication: BLOOD CHOLESTEROL INCREASED
  5. CONTRACEPTIVE, UNSPECIFIED [Concomitant]
     Indication: CONTRACEPTION
  6. DRUG, UNSPECIFIED [Concomitant]

REACTIONS (1)
  - ABDOMINAL PAIN UPPER [None]
